FAERS Safety Report 8771919 (Version 2)
Quarter: 2013Q1

REPORT INFORMATION
  Report Type: Spontaneous
  Country: US (occurrence: US)
  Receive Date: 20120906
  Receipt Date: 20130211
  Transmission Date: 20140127
  Serious: No
  Sender: FDA-Public Use
  Company Number: US-009507513-1208USA009898

PATIENT
  Sex: Male
  Weight: 99.77 kg

DRUGS (6)
  1. CLARITIN [Suspect]
     Indication: SEASONAL ALLERGY
     Dosage: UNK, ONCE
     Route: 048
     Dates: start: 201201
  2. CLARITIN [Suspect]
     Indication: MEDICAL OBSERVATION
  3. QUINAPRIL HYDROCHLORIDE [Concomitant]
     Indication: PRODUCT USED FOR UNKNOWN INDICATION
     Dosage: UNK, UNKNOWN
  4. SYNTHROID [Concomitant]
     Indication: PRODUCT USED FOR UNKNOWN INDICATION
     Dosage: UNK, UNKNOWN
  5. GLUCOSAMINE [Concomitant]
     Indication: ARTHROPATHY
     Dosage: UNK, UNKNOWN
  6. LECITHIN [Concomitant]
     Indication: BLOOD CHOLESTEROL INCREASED
     Dosage: UNK, UNKNOWN

REACTIONS (2)
  - Dizziness [Recovered/Resolved]
  - Adverse drug reaction [Unknown]
